FAERS Safety Report 4266300-3 (Version None)
Quarter: 2004Q1

REPORT INFORMATION
  Report Type: 
  Country: None (occurrence: None)
  Receive Date: 20040107
  Receipt Date: 20031226
  Transmission Date: 20041129
  Serious: Yes (Hospitalization)
  Sender: FDA-Public Use
  Company Number: WAES 0312USA02552

PATIENT
  Age: 59 Year
  Sex: Female

DRUGS (3)
  1. ATENOLOL [Concomitant]
     Dates: end: 20031201
  2. ZETIA [Suspect]
     Indication: DYSLIPIDAEMIA
     Route: 048
     Dates: start: 20031201, end: 20031223
  3. PRAVASTATIN SODIUM [Concomitant]
     Dates: end: 20031201

REACTIONS (2)
  - PETECHIAE [None]
  - THROMBOCYTOPENIA [None]
